FAERS Safety Report 17179305 (Version 2)
Quarter: 2020Q1

REPORT INFORMATION
  Report Type: Report from Study
  Country: US (occurrence: US)
  Receive Date: 20191219
  Receipt Date: 20200302
  Transmission Date: 20200409
  Serious: Yes (Other)
  Sender: FDA-Public Use
  Company Number: NVSC2019US073440

PATIENT
  Age: 17 Year
  Sex: Female

DRUGS (3)
  1. KYMRIAH [Suspect]
     Active Substance: TISAGENLECLEUCEL
     Indication: B-CELL TYPE ACUTE LEUKAEMIA
     Dosage: 2.2X10^6 CAR-POSITIVE VIABLE T CELLS/KG BODY WEIGHT
     Route: 065
     Dates: start: 2019
  2. FLUDARABINE [Concomitant]
     Active Substance: FLUDARABINE PHOSPHATE
     Indication: CHEMOTHERAPY
     Route: 065
  3. CYCLOPHOSPHAMIDE. [Concomitant]
     Active Substance: CYCLOPHOSPHAMIDE
     Indication: CHEMOTHERAPY
     Route: 065

REACTIONS (12)
  - Hypotension [Unknown]
  - Acute graft versus host disease [Unknown]
  - Lymphocyte count decreased [Unknown]
  - Hypoxia [Unknown]
  - Headache [Unknown]
  - Viral upper respiratory tract infection [Unknown]
  - Cytokine release syndrome [Recovered/Resolved]
  - Neurotoxicity [Recovered/Resolved]
  - Sinusitis [Unknown]
  - Human metapneumovirus test positive [Unknown]
  - Pyrexia [Unknown]
  - Rhinovirus infection [Unknown]
